FAERS Safety Report 6251522-2 (Version None)
Quarter: 2009Q2

REPORT INFORMATION
  Report Type: 
  Country: None (occurrence: None)
  Receive Date: 20090626
  Receipt Date: 20090626
  Transmission Date: 20091009
  Serious: No
  Sender: FDA-Public Use
  Company Number: None

PATIENT
  Sex: Female
  Weight: 77.1115 kg

DRUGS (1)
  1. ZICAM COLD REMEDY GEL SWABS 7 3221620101 7 [Suspect]
     Indication: NASOPHARYNGITIS
     Dosage: 3 OR 4 OVER SEVERAL DAYS NASAL EARLY NOVEMBER 2008
     Route: 045

REACTIONS (1)
  - ANOSMIA [None]
